FAERS Safety Report 23885380 (Version 2)
Quarter: 2024Q2

REPORT INFORMATION
  Report Type: Spontaneous
  Country: US (occurrence: US)
  Receive Date: 20240522
  Receipt Date: 20240621
  Transmission Date: 20240715
  Serious: No
  Sender: FDA-Public Use
  Company Number: US-MYLANLABS-2024M1041663

PATIENT
  Sex: Female

DRUGS (3)
  1. BREYNA [Suspect]
     Active Substance: BUDESONIDE\FORMOTEROL FUMARATE
     Indication: Asthma
     Dosage: 80/4.5 MICROGRAM, BID
     Route: 055
  2. BREYNA [Suspect]
     Active Substance: BUDESONIDE\FORMOTEROL FUMARATE
     Indication: Dyspnoea
  3. SYMBICORT [Concomitant]
     Active Substance: BUDESONIDE\FORMOTEROL FUMARATE DIHYDRATE
     Dosage: UNK
     Route: 065
     Dates: start: 201801

REACTIONS (6)
  - Dysphonia [Unknown]
  - Candida infection [Unknown]
  - Drug ineffective [Unknown]
  - Therapeutic response changed [Unknown]
  - Product use complaint [Unknown]
  - Product substitution issue [Unknown]
